FAERS Safety Report 8513443-1 (Version None)
Quarter: 2012Q3

REPORT INFORMATION
  Report Type: 
  Country: None (occurrence: None)
  Receive Date: 20120717
  Receipt Date: 20120703
  Transmission Date: 20120928
  Serious: No
  Sender: FDA-Public Use
  Company Number: US-BIOGENIDEC-2012BI022593

PATIENT
  Age: 51 Year

DRUGS (2)
  1. TYSABRI [Suspect]
     Indication: MULTIPLE SCLEROSIS
     Route: 042
  2. TYSABRI [Suspect]
     Route: 042
     Dates: start: 20120106

REACTIONS (5)
  - UPPER LIMB FRACTURE [None]
  - MULTIPLE SCLEROSIS [None]
  - DIARRHOEA [None]
  - INFLUENZA [None]
  - FALL [None]
